FAERS Safety Report 5944322-1 (Version None)
Quarter: 2008Q4

REPORT INFORMATION
  Report Type: 
  Country: None (occurrence: None)
  Receive Date: 20081105
  Receipt Date: 20081024
  Transmission Date: 20090506
  Serious: Yes (Hospitalization)
  Sender: FDA-Public Use
  Company Number: SPV1-2008-01889

PATIENT
  Sex: Female

DRUGS (1)
  1. LIALDA [Suspect]
     Indication: PROCTITIS ULCERATIVE
     Dosage: 2.4 G 1X'DAY: QD, ORAL
     Route: 048
     Dates: start: 20080101, end: 20080825

REACTIONS (5)
  - CHOLECYSTITIS [None]
  - HEPATITIS [None]
  - OFF LABEL USE [None]
  - PRURITUS [None]
  - URINARY TRACT INFECTION [None]
